FAERS Safety Report 12111133 (Version 1)
Quarter: 2016Q1

REPORT INFORMATION
  Report Type: Spontaneous
  Country: DE (occurrence: DE)
  Receive Date: 20160224
  Receipt Date: 20160224
  Transmission Date: 20160526
  Serious: Yes (Other)
  Sender: FDA-Public Use
  Company Number: DE-TEVA-635376GER

PATIENT
  Age: 65 Year
  Sex: Male

DRUGS (7)
  1. ASS 100 [Concomitant]
     Active Substance: ASPIRIN
     Indication: HYPERTENSION
  2. CLONIDIN-RATIOPHARM 75 [Suspect]
     Active Substance: CLONIDINE
     Indication: HYPERTENSION
     Dosage: 3/4 TABLET
     Dates: start: 20160116, end: 20160122
  3. CLONIDIN-RATIOPHARM 75 [Suspect]
     Active Substance: CLONIDINE
     Indication: HYPERTENSION
     Dosage: 1/2 TABLET
     Dates: start: 20160123, end: 20160129
  4. CLONIDIN-RATIOPHARM 75 [Suspect]
     Active Substance: CLONIDINE
     Indication: HYPERTENSION
     Dosage: 1/4 TABLET
     Dates: start: 20160130
  5. CLONIDIN-RATIOPHARM 75 [Suspect]
     Active Substance: CLONIDINE
     Indication: HYPERTENSION
     Dates: start: 20151227, end: 20160116
  6. CANDESARTAN 32 MG [Concomitant]
     Active Substance: CANDESARTAN
     Indication: HYPERTENSION
     Dosage: 3/4 TABLET IN THE MORNING
  7. HCT DEXCEL 25 MG TABLETTEN [Concomitant]
     Indication: HYPERTENSION
     Dosage: 1/2

REACTIONS (5)
  - Drug withdrawal syndrome [Recovered/Resolved]
  - Drug dependence [Recovered/Resolved]
  - Tremor [Recovered/Resolved]
  - Sensory loss [Recovered/Resolved]
  - Restlessness [Recovered/Resolved]

NARRATIVE: CASE EVENT DATE: 20151227
